FAERS Safety Report 15941377 (Version 4)
Quarter: 2022Q1

REPORT INFORMATION
  Report Type: Spontaneous
  Country: US (occurrence: None)
  Receive Date: 20190208
  Receipt Date: 20220317
  Transmission Date: 20220423
  Serious: Yes (Other)
  Sender: FDA-Public Use
  Company Number: 2019SE09554

PATIENT
  Sex: Female
  Weight: 122.5 kg

DRUGS (63)
  1. NEXIUM [Suspect]
     Active Substance: ESOMEPRAZOLE MAGNESIUM
     Indication: Gastrooesophageal reflux disease
     Route: 048
     Dates: start: 20090101, end: 20171231
  2. NEXIUM [Suspect]
     Active Substance: ESOMEPRAZOLE MAGNESIUM
     Indication: Gastrooesophageal reflux disease
     Route: 048
     Dates: start: 20070702
  3. NEXIUM [Suspect]
     Active Substance: ESOMEPRAZOLE MAGNESIUM
     Indication: Gastrooesophageal reflux disease
     Dosage: GENERIC
     Route: 065
     Dates: start: 20070702
  4. NEXIUM [Suspect]
     Active Substance: ESOMEPRAZOLE MAGNESIUM
     Indication: Gastrooesophageal reflux disease
     Dosage: GENERIC
     Route: 065
     Dates: start: 2009, end: 2017
  5. NEXIUM 24HR [Suspect]
     Active Substance: ESOMEPRAZOLE MAGNESIUM
     Dosage: FOR MULTIPLE AND VARIOUS YEARS
     Route: 048
  6. NEXIUM 24HR [Suspect]
     Active Substance: ESOMEPRAZOLE MAGNESIUM
     Route: 048
     Dates: start: 20140328, end: 20171231
  7. PRILOSEC [Suspect]
     Active Substance: OMEPRAZOLE MAGNESIUM
     Indication: Gastrooesophageal reflux disease
     Route: 048
     Dates: start: 20090101, end: 20171231
  8. PRILOSEC [Suspect]
     Active Substance: OMEPRAZOLE MAGNESIUM
     Indication: Gastrooesophageal reflux disease
     Dosage: GENERIC
     Route: 065
     Dates: start: 20090101, end: 20171231
  9. PRILOSEC [Suspect]
     Active Substance: OMEPRAZOLE MAGNESIUM
     Indication: Gastrooesophageal reflux disease
     Route: 048
     Dates: start: 2009, end: 2017
  10. PRILOSEC OTC [Suspect]
     Active Substance: OMEPRAZOLE MAGNESIUM
     Indication: Gastrooesophageal reflux disease
     Route: 048
     Dates: start: 20090101, end: 20171231
  11. PRILOSEC OTC [Suspect]
     Active Substance: OMEPRAZOLE MAGNESIUM
     Indication: Gastrooesophageal reflux disease
     Route: 048
     Dates: start: 2009, end: 2017
  12. DEXILANT [Suspect]
     Active Substance: DEXLANSOPRAZOLE
     Indication: Gastrooesophageal reflux disease
     Dosage: FOR MULTIPLE AND VARIOUS YEARS
     Route: 065
  13. DEXILANT [Suspect]
     Active Substance: DEXLANSOPRAZOLE
     Indication: Gastrooesophageal reflux disease
     Dosage: GENERIC
     Route: 065
     Dates: start: 2009, end: 2017
  14. PREVACID [Suspect]
     Active Substance: LANSOPRAZOLE
     Indication: Gastrooesophageal reflux disease
     Route: 065
     Dates: start: 20090101, end: 20171231
  15. PREVACID [Suspect]
     Active Substance: LANSOPRAZOLE
     Indication: Gastrooesophageal reflux disease
     Route: 065
     Dates: start: 2009, end: 2017
  16. PREVACID 24 HR [Suspect]
     Active Substance: LANSOPRAZOLE
     Dosage: FOR MULTIPLE AND VARIOUS YEARS
     Route: 065
  17. PREVACID 24 HR [Suspect]
     Active Substance: LANSOPRAZOLE
     Route: 065
     Dates: start: 20090518, end: 20171231
  18. PROTONIX [Suspect]
     Active Substance: PANTOPRAZOLE SODIUM
     Indication: Gastrooesophageal reflux disease
     Route: 065
     Dates: start: 20090101, end: 20171231
  19. PROTONIX [Suspect]
     Active Substance: PANTOPRAZOLE SODIUM
     Indication: Gastrooesophageal reflux disease
     Dosage: PANTOPRAZOLE SODIUM
     Route: 065
     Dates: start: 20140512
  20. PROTONIX [Suspect]
     Active Substance: PANTOPRAZOLE SODIUM
     Indication: Gastrooesophageal reflux disease
     Dosage: GENERIC
     Route: 065
     Dates: start: 2009, end: 2017
  21. PROTONIX [Suspect]
     Active Substance: PANTOPRAZOLE SODIUM
     Indication: Gastrooesophageal reflux disease
     Dosage: GENERIC
     Route: 065
     Dates: start: 2009, end: 2017
  22. PROTONIX [Suspect]
     Active Substance: PANTOPRAZOLE SODIUM
     Route: 065
     Dates: start: 20090101, end: 20171231
  23. CELEBREX [Concomitant]
     Active Substance: CELECOXIB
  24. ENALAPRIL MALEATE [Concomitant]
     Active Substance: ENALAPRIL MALEATE
  25. CLONAZEPAM [Concomitant]
     Active Substance: CLONAZEPAM
  26. HYDROCHLOROTHIAZIDE [Concomitant]
     Active Substance: HYDROCHLOROTHIAZIDE
  27. TRAMADOL HYDROCHLORIDE [Concomitant]
     Active Substance: TRAMADOL HYDROCHLORIDE
  28. CYCLOBENZAPRINE HYDROCHLORIDE [Concomitant]
     Active Substance: CYCLOBENZAPRINE HYDROCHLORIDE
  29. BYETTA [Concomitant]
     Active Substance: EXENATIDE
  30. MIRTAZAPINE [Concomitant]
     Active Substance: MIRTAZAPINE
  31. FUROSEMIDE [Concomitant]
     Active Substance: FUROSEMIDE
  32. GLIPIZIDE [Concomitant]
     Active Substance: GLIPIZIDE
  33. PLAVIX [Concomitant]
     Active Substance: CLOPIDOGREL BISULFATE
  34. LOVASTATIN [Concomitant]
     Active Substance: LOVASTATIN
  35. TOPAMAX [Concomitant]
     Active Substance: TOPIRAMATE
  36. GABAPENTIN [Concomitant]
     Active Substance: GABAPENTIN
  37. DESONIDE [Concomitant]
     Active Substance: DESONIDE
  38. ALLOPURINOL [Concomitant]
     Active Substance: ALLOPURINOL
  39. CRESTOR [Concomitant]
     Active Substance: ROSUVASTATIN CALCIUM
  40. SIMVASTATIN [Concomitant]
     Active Substance: SIMVASTATIN
  41. AZITHROMYCIN [Concomitant]
     Active Substance: AZITHROMYCIN
  42. RISPERIDONE [Concomitant]
     Active Substance: RISPERIDONE
  43. DONNATAL [Concomitant]
     Active Substance: ATROPINE SULFATE\HYOSCYAMINE SULFATE\PHENOBARBITAL\SCOPOLAMINE HYDROBROMIDE
  44. LIDODERM [Concomitant]
     Active Substance: LIDOCAINE
  45. DIAZEPAM [Concomitant]
     Active Substance: DIAZEPAM
  46. MUPIROCIN [Concomitant]
     Active Substance: MUPIROCIN
  47. LEVETIRACETAM [Concomitant]
     Active Substance: LEVETIRACETAM
  48. NEVANAC [Concomitant]
     Active Substance: NEPAFENAC
  49. VIGAMOX [Concomitant]
     Active Substance: MOXIFLOXACIN HYDROCHLORIDE
  50. ELIQUIS [Concomitant]
     Active Substance: APIXABAN
  51. AMLODIPINE [Concomitant]
     Active Substance: AMLODIPINE BESYLATE
  52. WARFARIN SODIUM [Concomitant]
     Active Substance: WARFARIN SODIUM
  53. VENTOLIN HFA [Concomitant]
     Active Substance: ALBUTEROL SULFATE
  54. CARVEDILOL [Concomitant]
     Active Substance: CARVEDILOL
  55. VALACYCLOVIR [Concomitant]
     Active Substance: VALACYCLOVIR HYDROCHLORIDE
  56. CONSTULOSE [Concomitant]
     Active Substance: LACTULOSE
  57. VAGIFEM [Concomitant]
     Active Substance: ESTRADIOL
  58. ACARBOSE [Concomitant]
     Active Substance: ACARBOSE
  59. PREDNISONE [Concomitant]
     Active Substance: PREDNISONE
  60. METFORMIN [Concomitant]
     Active Substance: METFORMIN HYDROCHLORIDE
  61. HYDROCORTISONE [Concomitant]
     Active Substance: HYDROCORTISONE
  62. MIRTAZAPINE [Concomitant]
     Active Substance: MIRTAZAPINE
  63. NORTRIPTYLINE [Concomitant]
     Active Substance: NORTRIPTYLINE

REACTIONS (6)
  - Chronic kidney disease [Unknown]
  - Renal failure [Unknown]
  - Renal injury [Unknown]
  - Acute kidney injury [Unknown]
  - Rebound acid hypersecretion [Unknown]
  - Gastrooesophageal reflux disease [Not Recovered/Not Resolved]
